FAERS Safety Report 25952625 (Version 1)
Quarter: 2025Q4

REPORT INFORMATION
  Report Type: Spontaneous
  Country: US (occurrence: US)
  Receive Date: 20251023
  Receipt Date: 20251023
  Transmission Date: 20260118
  Serious: No
  Sender: AVERITAS
  Company Number: US-GRUNENTHAL-2025-123908

PATIENT
  Sex: Male

DRUGS (2)
  1. MOVANTIK [Suspect]
     Active Substance: NALOXEGOL OXALATE
     Indication: Constipation
     Dosage: UNK
     Route: 048
     Dates: start: 20251015
  2. MORPHINE [Concomitant]
     Active Substance: MORPHINE
     Indication: Product used for unknown indication
     Dosage: 45 MILLIGRAM, 2/DAY
     Route: 065

REACTIONS (2)
  - Abdominal discomfort [Unknown]
  - Malaise [Unknown]

NARRATIVE: CASE EVENT DATE: 20251001
